FAERS Safety Report 4280434-9 (Version None)
Quarter: 2004Q1

REPORT INFORMATION
  Report Type: 
  Country: None (occurrence: None)
  Receive Date: 20040126
  Receipt Date: 20040115
  Transmission Date: 20041129
  Serious: Yes (Hospitalization, Other)
  Sender: FDA-Public Use
  Company Number: 2002092891US

PATIENT
  Age: 38 Year
  Sex: Female

DRUGS (3)
  1. DEPO-PROVERA (MEDROXYPROGESTERONE) [Suspect]
     Indication: CONTRACEPTION
     Dosage: 1ST AND SINGLE INJECTION, INTRAMUSCULAR
     Route: 030
     Dates: start: 19951223, end: 19951223
  2. DIET FORMULATIONS FOR TREATMENT OF OBESITY [Suspect]
     Dosage: ORAL
     Route: 048
  3. PHENTERMINE HCL [Concomitant]

REACTIONS (41)
  - AMENORRHOEA [None]
  - AMNESIA [None]
  - ANXIETY [None]
  - APTYALISM [None]
  - BIPOLAR DISORDER [None]
  - BLADDER DISORDER [None]
  - CARPAL TUNNEL SYNDROME [None]
  - CHRONIC FATIGUE SYNDROME [None]
  - DEMENTIA [None]
  - DEPRESSION [None]
  - DIVERTICULUM [None]
  - DRUG INTERACTION [None]
  - FIBROMYALGIA [None]
  - HEPATIC STEATOSIS [None]
  - HYPERHIDROSIS [None]
  - HYPERTENSION [None]
  - IMPAIRED HEALING [None]
  - INFERTILITY FEMALE [None]
  - INTERVERTEBRAL DISC DEGENERATION [None]
  - IRRITABLE BOWEL SYNDROME [None]
  - LACTOSE INTOLERANCE [None]
  - LOSS OF EMPLOYMENT [None]
  - NASAL POLYPS [None]
  - NERVE COMPRESSION [None]
  - OBSESSIVE-COMPULSIVE DISORDER [None]
  - OESOPHAGEAL DISORDER [None]
  - OSTEOARTHRITIS [None]
  - OSTEOPENIA [None]
  - PANIC ATTACK [None]
  - PREMATURE MENOPAUSE [None]
  - RAYNAUD'S PHENOMENON [None]
  - RHINITIS [None]
  - RIB FRACTURE [None]
  - SEASONAL AFFECTIVE DISORDER [None]
  - SKIN ODOUR ABNORMAL [None]
  - SPINAL FRACTURE [None]
  - SPONDYLOLISTHESIS ACQUIRED [None]
  - SPONDYLOSIS [None]
  - SUICIDAL IDEATION [None]
  - TRICHOTILLOMANIA [None]
  - VULVOVAGINAL DISCOMFORT [None]
